FAERS Safety Report 6240216-5 (Version None)
Quarter: 2009Q2

REPORT INFORMATION
  Report Type: 
  Country: None (occurrence: None)
  Receive Date: 20090623
  Receipt Date: 20080328
  Transmission Date: 20091009
  Serious: No
  Sender: FDA-Public Use
  Company Number: US-ASTRAZENECA-2008UW06300

PATIENT
  Age: 58 Year
  Sex: Male

DRUGS (5)
  1. PULMICORT RESPULES [Suspect]
     Indication: PNEUMONIA
     Route: 055
  2. NEXIUM [Concomitant]
  3. UNITHYROID [Concomitant]
  4. CYTOMEL [Concomitant]
  5. AVONEX [Concomitant]

REACTIONS (2)
  - DYSGEUSIA [None]
  - NASAL ODOUR [None]
